FAERS Safety Report 10759422 (Version 1)
Quarter: 2015Q1

REPORT INFORMATION
  Report Type: Spontaneous
  Country: US (occurrence: None)
  Receive Date: 20150126
  Receipt Date: 20150126
  Transmission Date: 20150721
  Serious: Yes (Other)
  Sender: FDA-Public Use
  Company Number: MC201300435

PATIENT
  Age: 48 Year
  Sex: Female
  Weight: 72.56 kg

DRUGS (3)
  1. ANGIOMAX [Suspect]
     Active Substance: BIVALIRUDIN
     Indication: PERCUTANEOUS CORONARY INTERVENTION
     Dosage: 11 ML (0.75 MG/KG), BOLUS (11 ML, BOLUS), INTRAVENOUS (NOT OTHERWISE SPECIFIED)?
     Route: 042
     Dates: start: 20130909, end: 20130909
  2. ASPIRIN (ACETYLSALICYLIC ACID) [Concomitant]
     Active Substance: ASPIRIN
  3. PLAVIX (CLOPIDOGREL BISULFATE) [Concomitant]

REACTIONS (4)
  - Cardiovascular disorder [None]
  - Coronary artery thrombosis [None]
  - Coronary artery occlusion [None]
  - Coagulation time abnormal [None]

NARRATIVE: CASE EVENT DATE: 20130909
